FAERS Safety Report 5609806-4 (Version None)
Quarter: 2008Q1

REPORT INFORMATION
  Report Type: 
  Country: None (occurrence: None)
  Receive Date: 20080131
  Receipt Date: 20071214
  Transmission Date: 20080703
  Serious: No
  Sender: FDA-Public Use
  Company Number: US-BAYER-200714210BCC

PATIENT
  Age: 79 Year
  Sex: Female
  Weight: 86 kg

DRUGS (10)
  1. ALEVE [Suspect]
     Indication: NERVE COMPRESSION
     Dosage: TOTAL DAILY DOSE: 220 MG  UNIT DOSE: 220 MG
     Route: 048
     Dates: start: 20071210, end: 20071211
  2. ALEVE [Suspect]
     Dosage: TOTAL DAILY DOSE: 220 MG  UNIT DOSE: 220 MG
     Route: 048
     Dates: start: 20071212
  3. LIPITOR [Concomitant]
  4. ATACAND [Concomitant]
  5. PREVACID [Concomitant]
  6. ACTONEL [Concomitant]
  7. VITAMIN D [Concomitant]
  8. WAL-MART VITAMIN [Concomitant]
  9. COQ10 [Concomitant]
  10. POTASSIUM CHLORIDE [Concomitant]

REACTIONS (1)
  - CONSTIPATION [None]
